FAERS Safety Report 7469549-1 (Version None)
Quarter: 2011Q2

REPORT INFORMATION
  Report Type: 
  Country: None (occurrence: None)
  Receive Date: 20110510
  Receipt Date: 20110429
  Transmission Date: 20111010
  Serious: Yes (Other)
  Sender: FDA-Public Use
  Company Number: PHHY2011US36635

PATIENT
  Sex: Female

DRUGS (1)
  1. EXJADE [Suspect]
     Indication: HAEMOGLOBINURIA
     Dosage: 500 MG, QD
     Route: 048

REACTIONS (2)
  - CELLULITIS [None]
  - DIARRHOEA [None]
